FAERS Safety Report 6058461-0 (Version None)
Quarter: 2009Q1

REPORT INFORMATION
  Report Type: 
  Country: None (occurrence: None)
  Receive Date: 20090130
  Receipt Date: 20090122
  Transmission Date: 20090719
  Serious: Yes (Hospitalization)
  Sender: FDA-Public Use
  Company Number: US-ASTRAZENECA-2009UW00217

PATIENT
  Age: 23093 Day
  Sex: Female
  Weight: 55.8 kg

DRUGS (2)
  1. FULVESTRANT [Suspect]
     Indication: BREAST CANCER METASTATIC
     Dosage: 500MG D1 AND 250MG D15 OF C1 THAN 250MG D1 QCYCLE
     Route: 048
     Dates: start: 20081106, end: 20081205
  2. BEVACIZUMAB [Suspect]
     Indication: BREAST CANCER METASTATIC
     Dosage: 10MG/KG D1 AND D15
     Route: 042
     Dates: start: 20081106, end: 20081219

REACTIONS (4)
  - ACUTE MYOCARDIAL INFARCTION [None]
  - CONVULSION [None]
  - DEPRESSED LEVEL OF CONSCIOUSNESS [None]
  - RESPIRATORY FAILURE [None]
